FAERS Safety Report 8232270-6 (Version None)
Quarter: 2012Q1

REPORT INFORMATION
  Report Type: 
  Country: None (occurrence: None)
  Receive Date: 20120323
  Receipt Date: 20120315
  Transmission Date: 20120608
  Serious: Yes (Hospitalization)
  Sender: FDA-Public Use
  Company Number: US-ACTELION-A-NJ2012-61157

PATIENT

DRUGS (3)
  1. VENTAVIS [Suspect]
     Indication: PULMONARY ARTERIAL HYPERTENSION
     Dosage: UNK
     Route: 055
  2. VENTAVIS [Suspect]
     Dosage: UNK
     Route: 055
     Dates: start: 20100401
  3. CALCIUM CHANNEL BLOCKERS [Concomitant]

REACTIONS (3)
  - CARDIAC ENZYMES INCREASED [None]
  - ABDOMINAL PAIN UPPER [None]
  - OEDEMA [None]
